FAERS Safety Report 12996521 (Version 1)
Quarter: 2016Q4

REPORT INFORMATION
  Report Type: Spontaneous
  Country: US (occurrence: US)
  Receive Date: 20161204
  Receipt Date: 20161204
  Transmission Date: 20170207
  Serious: Yes (Other)
  Sender: FDA-Public Use
  Company Number: US-GLAXOSMITHKLINE-US2016171619

PATIENT
  Age: 68 Year
  Sex: Female

DRUGS (1)
  1. EXCEDRIN MIGRAINE [Suspect]
     Active Substance: ACETAMINOPHEN\ASPIRIN\CAFFEINE
     Indication: MIGRAINE
     Dosage: 1 DF, UNK
     Route: 048
     Dates: start: 20161116

REACTIONS (2)
  - Incorrect dose administered [Unknown]
  - Hip surgery [Unknown]

NARRATIVE: CASE EVENT DATE: 20161116
